FAERS Safety Report 8038389-7 (Version None)
Quarter: 2012Q1

REPORT INFORMATION
  Report Type: 
  Country: None (occurrence: None)
  Receive Date: 20120111
  Receipt Date: 20111209
  Transmission Date: 20120608
  Serious: No
  Sender: FDA-Public Use
  Company Number: US-AMGEN-USASP2011032641

PATIENT
  Sex: Female
  Weight: 58.957 kg

DRUGS (14)
  1. CALCIUM WITH VITAMIN D             /00944201/ [Concomitant]
     Dosage: 200 MG, QD
     Route: 048
  2. FOLIC ACID [Concomitant]
     Dosage: 1 MG, QD
     Route: 048
  3. ENBREL [Suspect]
     Indication: RHEUMATOID ARTHRITIS
     Dosage: 50 MG, QWK
     Route: 058
     Dates: start: 20110501
  4. METHOTREXATE [Concomitant]
  5. BONIVA [Concomitant]
     Dosage: UNK UNK, QMO
     Route: 048
  6. B COMPLEX                          /00212701/ [Concomitant]
     Route: 048
  7. MULTIVITAMIN                       /00097801/ [Concomitant]
     Route: 048
  8. OMEGA 3-6-9 [Concomitant]
     Route: 048
  9. SYNTHROID [Concomitant]
     Dosage: 75 MUG, Q10MIN
     Route: 048
  10. FLUCONAZOLE [Concomitant]
     Dosage: 100 ML, PRN
  11. SIMVASTATIN [Concomitant]
     Dosage: UNK
  12. WELLBUTRIN XL [Concomitant]
     Dosage: 150 MG, QD
     Route: 048
  13. ZYRTEC [Concomitant]
     Dosage: 10 MG, QD
     Route: 048
  14. COQ-10 [Concomitant]
     Dosage: 100 MG, QD
     Route: 048

REACTIONS (10)
  - HEADACHE [None]
  - SYNOVIAL CYST [None]
  - LIMB INJURY [None]
  - PAIN IN EXTREMITY [None]
  - SPEECH DISORDER [None]
  - OEDEMA PERIPHERAL [None]
  - SOFT TISSUE INFLAMMATION [None]
  - APHASIA [None]
  - ARTHRALGIA [None]
  - UPPER RESPIRATORY TRACT INFECTION [None]
